FAERS Safety Report 9224389 (Version 1)
Quarter: 2013Q1

REPORT INFORMATION
  Report Type: Spontaneous
  Country: US (occurrence: None)
  Receive Date: 20120917
  Receipt Date: 20120917
  Transmission Date: 20140127
  Serious: Yes (Hospitalization, Other)
  Sender: FDA-Public Use
  Company Number: 2012SP022294

PATIENT
  Age: 35 Year
  Sex: Female

DRUGS (2)
  1. IMPLANON ( 68 MG) [Suspect]
     Indication: CONTRACEPTION
     Dates: start: 20120329, end: 20120406
  2. ATENOLOL [Concomitant]

REACTIONS (1)
  - Implant site cellulitis [None]
